FAERS Safety Report 9457445 (Version 1)
Quarter: 2013Q3

REPORT INFORMATION
  Report Type: Spontaneous
  Country: US (occurrence: None)
  Receive Date: 20130812
  Receipt Date: 20130812
  Transmission Date: 20140515
  Serious: Yes (Disabling, Other)
  Sender: FDA-Public Use
  Company Number: None

PATIENT
  Age: 60 Year
  Sex: Female
  Weight: 86.18 kg

DRUGS (1)
  1. CYMBALTA [Suspect]
     Indication: FIBROMYALGIA
     Dosage: 1 PILL  ONCE DAILY  TAKEN BY MOUTH?APPROX 1 1/2 YEARS
     Route: 048

REACTIONS (10)
  - Nausea [None]
  - Abdominal pain [None]
  - Dizziness [None]
  - Insomnia [None]
  - Hyperhidrosis [None]
  - Headache [None]
  - Vision blurred [None]
  - Agitation [None]
  - Feeling of despair [None]
  - Dysstasia [None]
